FAERS Safety Report 10913215 (Version 1)
Quarter: 2015Q1

REPORT INFORMATION
  Report Type: Spontaneous
  Country: US (occurrence: None)
  Receive Date: 20150311
  Receipt Date: 20150311
  Transmission Date: 20150721
  Serious: Yes (Life-Threatening, Hospitalization)
  Sender: FDA-Public Use
  Company Number: US-2015TEC0000013

PATIENT
  Age: 63 Year
  Sex: Male

DRUGS (2)
  1. HEPARIN SODIUM INJECTION USP, PRESERVATIVE FREE (HEPARIN SODIUM) INJECTION [Suspect]
     Active Substance: HEPARIN SODIUM
     Indication: PRODUCT USED FOR UNKNOWN INDICATION
  2. WARFARIN (WARFARIN) [Concomitant]
     Active Substance: WARFARIN

REACTIONS (9)
  - Haemorrhoids [None]
  - Hypoaesthesia [None]
  - Flushing [None]
  - Collateral circulation [None]
  - Dizziness [None]
  - Haematochezia [None]
  - Superior vena cava syndrome [None]
  - Antiphospholipid syndrome [None]
  - Acute kidney injury [None]

NARRATIVE: CASE EVENT DATE: 201309
